FAERS Safety Report 4980256-7 (Version None)
Quarter: 2006Q2

REPORT INFORMATION
  Report Type: 
  Country: None (occurrence: None)
  Receive Date: 20060424
  Receipt Date: 20060418
  Transmission Date: 20061013
  Serious: Yes (Life-Threatening, Hospitalization, Other)
  Sender: FDA-Public Use
  Company Number: PHEH2006US05058

PATIENT
  Age: 37 Year
  Sex: Male

DRUGS (14)
  1. METOPROLOL TARTRATE [Suspect]
     Indication: ATRIAL FIBRILLATION
     Dosage: 50 MG, BID
  2. METOPROLOL TARTRATE [Suspect]
     Dosage: 75 MG, BID
     Dates: start: 20060404, end: 20060405
  3. METOPROLOL TARTRATE [Suspect]
     Dosage: 50 MG, BID
     Dates: start: 20060401
  4. STEROIDS NOS [Concomitant]
  5. RITUXIMAB [Concomitant]
  6. VORICONAZOLE [Concomitant]
  7. ACYCLOVIR [Concomitant]
     Indication: ANTIVIRAL PROPHYLAXIS
     Dosage: 400 MG, BID
  8. INSULIN [Concomitant]
     Indication: HYPERGLYCAEMIA
     Dosage: 6 UNK, PRN
     Route: 058
  9. LORAZEPAM [Concomitant]
     Indication: AGITATION
     Dosage: 4 MG, PRN
     Route: 042
     Dates: start: 20060327
  10. METHYLPREDNISOLONE [Concomitant]
     Indication: GRAFT VERSUS HOST DISEASE
     Dosage: 80 MG, Q12H
     Route: 042
     Dates: start: 20060401
  11. RANITIDINE [Concomitant]
     Indication: GASTROOESOPHAGEAL REFLUX PROPHYLAXIS
     Dosage: 150 MG, BID
     Route: 048
     Dates: start: 20060404
  12. BUMETANIDE [Concomitant]
     Indication: FLUID OVERLOAD
     Dosage: 1 MG, QD
     Route: 042
     Dates: start: 20060405
  13. AZITHROMYCIN [Concomitant]
     Indication: ANTIBIOTIC PROPHYLAXIS
     Dosage: 500 MG, QD
     Route: 042
     Dates: start: 20060405
  14. POSACONAZOLE [Suspect]

REACTIONS (9)
  - AGITATION [None]
  - ATRIAL FIBRILLATION [None]
  - ATRIOVENTRICULAR BLOCK [None]
  - BRADYCARDIA [None]
  - CARDIAC ARREST [None]
  - FUNGAL INFECTION [None]
  - HYPOXIA [None]
  - SINUSITIS [None]
  - WHITE BLOOD CELL COUNT DECREASED [None]
